FAERS Safety Report 9276306 (Version 1)
Quarter: 2013Q2

REPORT INFORMATION
  Report Type: Spontaneous
  Country: TR (occurrence: TR)
  Receive Date: 20130507
  Receipt Date: 20130507
  Transmission Date: 20140414
  Serious: Yes (Other)
  Sender: FDA-Public Use
  Company Number: TR-TEVA-402174ISR

PATIENT
  Age: 64 Year
  Sex: Female

DRUGS (5)
  1. VINCRISTINE [Suspect]
     Dosage: .4 MILLIGRAM DAILY; ON A CONTINUOUS INFUSION
     Route: 041
  2. DOXORUBICIN [Suspect]
     Dosage: 9 MG/M2 DAILY; ON A CONTINUOUS INFUSION
     Route: 041
  3. DEXAMETHASONE [Suspect]
     Dosage: 40 MILLIGRAM DAILY; ON A SHORT INFUSION
     Route: 041
  4. LOW MOLECULAR WEIGHT HEPARIN [Concomitant]
     Indication: PROPHYLAXIS
     Route: 058
  5. LOW MOLECULAR WEIGHT HEPARIN [Concomitant]
     Dosage: TREATMENT DOSE
     Route: 058

REACTIONS (1)
  - Pancreatitis acute [Recovering/Resolving]
